FAERS Safety Report 12986651 (Version 2)
Quarter: 2016Q4

REPORT INFORMATION
  Report Type: Spontaneous
  Country: US (occurrence: US)
  Receive Date: 20161130
  Receipt Date: 20161212
  Transmission Date: 20170207
  Serious: Yes (Other)
  Sender: FDA-Public Use
  Company Number: US-DRREDDYS-USA/USA/16/0085207

PATIENT
  Age: 7 Year
  Sex: Female

DRUGS (1)
  1. TACROLIMUS. [Suspect]
     Active Substance: TACROLIMUS
     Indication: IMMUNOSUPPRESSANT DRUG THERAPY
     Route: 065

REACTIONS (5)
  - Neutropenia [Recovered/Resolved]
  - Cytopenia [Recovered/Resolved]
  - Drug ineffective [Recovered/Resolved]
  - Autoimmune haemolytic anaemia [Recovered/Resolved]
  - Evans syndrome [Recovered/Resolved]
